FAERS Safety Report 24534429 (Version 2)
Quarter: 2025Q2

REPORT INFORMATION
  Report Type: Spontaneous
  Country: GB (occurrence: GB)
  Receive Date: 20241022
  Receipt Date: 20250403
  Transmission Date: 20250717
  Serious: Yes (Other)
  Sender: CIPLA
  Company Number: GB-MHRA-MED-202410101023243000-NRMKQ

PATIENT

DRUGS (1)
  1. TADALAFIL [Suspect]
     Active Substance: TADALAFIL
     Indication: Pulmonary hypertension
     Dosage: 20 MILLIGRAM, BID
     Route: 065
     Dates: start: 2022

REACTIONS (2)
  - Blood potassium increased [Unknown]
  - Malaise [Unknown]

NARRATIVE: CASE EVENT DATE: 20241009
